FAERS Safety Report 6568707-8 (Version None)
Quarter: 2010Q1

REPORT INFORMATION
  Report Type: 
  Country: None (occurrence: None)
  Receive Date: 20100203
  Receipt Date: 20100126
  Transmission Date: 20100710
  Serious: Yes (Disabling)
  Sender: FDA-Public Use
  Company Number: PHHY2009IT58365

PATIENT
  Sex: Female

DRUGS (1)
  1. ZOMETA [Suspect]
     Indication: METASTASES TO BONE
     Dosage: UNK
     Route: 042

REACTIONS (4)
  - BONE OPERATION [None]
  - OSTEONECROSIS [None]
  - PATHOLOGICAL FRACTURE [None]
  - SEQUESTRECTOMY [None]
